FAERS Safety Report 21115615 (Version 1)
Quarter: 2022Q3

REPORT INFORMATION
  Report Type: Spontaneous
  Country: US (occurrence: US)
  Receive Date: 20220721
  Receipt Date: 20220721
  Transmission Date: 20221026
  Serious: No
  Sender: FDA-Public Use
  Company Number: US-SA-SAC20220718002219

PATIENT
  Age: 50 Year
  Sex: Female

DRUGS (15)
  1. AUBAGIO [Suspect]
     Active Substance: TERIFLUNOMIDE
     Indication: Multiple sclerosis
     Dosage: 14 MG QD
     Route: 048
     Dates: start: 20211207
  2. ALPHA LIPOIC ACID [Concomitant]
     Active Substance: .ALPHA.-LIPOIC ACID
  3. BACLOFEN [Concomitant]
     Active Substance: BACLOFEN
     Indication: Multiple sclerosis
  4. BUPROPION [Concomitant]
     Active Substance: BUPROPION
  5. FLUCONAZOLE [Concomitant]
     Active Substance: FLUCONAZOLE
  6. GABAPENTIN [Concomitant]
     Active Substance: GABAPENTIN
  7. JANTOVEN [Concomitant]
     Active Substance: WARFARIN SODIUM
  8. MAGNESIUM OXIDE [Concomitant]
     Active Substance: MAGNESIUM OXIDE
  9. OMEPRAZOLE [Concomitant]
     Active Substance: OMEPRAZOLE
  10. OZEMPIC [Concomitant]
     Active Substance: SEMAGLUTIDE
  11. PRILOSEC [Concomitant]
     Active Substance: OMEPRAZOLE MAGNESIUM
  12. TIZANIDINE [Concomitant]
     Active Substance: TIZANIDINE
  13. TOPIRAMATE [Concomitant]
     Active Substance: TOPIRAMATE
  14. TRESIBA [Concomitant]
     Active Substance: INSULIN DEGLUDEC
     Indication: Type 2 diabetes mellitus
  15. VITAMIN D3 [Concomitant]
     Active Substance: CHOLECALCIFEROL

REACTIONS (1)
  - Pain [Unknown]
